FAERS Safety Report 19712903 (Version 3)
Quarter: 2021Q4

REPORT INFORMATION
  Report Type: Spontaneous
  Country: US (occurrence: US)
  Receive Date: 20210817
  Receipt Date: 20211106
  Transmission Date: 20220303
  Serious: Yes (Hospitalization, Other)
  Sender: FDA-Public Use
  Company Number: US-JNJFOC-20210823390

PATIENT
  Age: 79 Year
  Sex: Female
  Weight: 100.33 kg

DRUGS (2)
  1. REMICADE [Suspect]
     Active Substance: INFLIXIMAB
     Indication: Crohn^s disease
     Route: 042
     Dates: start: 201407, end: 202107
  2. REMICADE [Suspect]
     Active Substance: INFLIXIMAB
     Indication: Fistula

REACTIONS (4)
  - Cardiac failure congestive [Recovered/Resolved]
  - Pericardial effusion [Recovered/Resolved]
  - Off label use [Unknown]
  - Product use issue [Unknown]

NARRATIVE: CASE EVENT DATE: 20140701
